FAERS Safety Report 16922793 (Version 1)
Quarter: 2019Q4

REPORT INFORMATION
  Report Type: Spontaneous
  Country: GB (occurrence: GB)
  Receive Date: 20191016
  Receipt Date: 20191016
  Transmission Date: 20200122
  Serious: Yes (Disabling)
  Sender: FDA-Public Use
  Company Number: GB-TEVA-2019-GB-1121450

PATIENT
  Age: 33 Year
  Sex: Female
  Weight: 57 kg

DRUGS (4)
  1. FLUOXETINE [Concomitant]
     Active Substance: FLUOXETINE HYDROCHLORIDE
     Dosage: TAKE ONE DAILY, 1 DF
     Dates: start: 20190806
  2. VENLAFAXINE [Concomitant]
     Active Substance: VENLAFAXINE HYDROCHLORIDE
     Dosage: TAKE ONE TWICE DAILY, 2 DF
     Dates: start: 20190902
  3. MIRTAZAPINE. [Concomitant]
     Active Substance: MIRTAZAPINE
     Dosage: TAKE ONE AT NIGHT, 1 DF
     Dates: start: 20190820
  4. MIRTAZAPINE. [Suspect]
     Active Substance: MIRTAZAPINE
     Dosage: 30 MG
     Dates: start: 20190820

REACTIONS (1)
  - Sedation complication [Recovered/Resolved]

NARRATIVE: CASE EVENT DATE: 20190820
